FAERS Safety Report 6313281-4 (Version None)
Quarter: 2009Q3

REPORT INFORMATION
  Report Type: 
  Country: None (occurrence: None)
  Receive Date: 20090818
  Receipt Date: 20090810
  Transmission Date: 20100115
  Serious: Yes (Death)
  Sender: FDA-Public Use
  Company Number: A0783824A

PATIENT
  Sex: Female

DRUGS (5)
  1. ADVAIR HFA [Suspect]
     Indication: DRUG USE FOR UNKNOWN INDICATION
     Route: 055
  2. SEREVENT [Suspect]
     Indication: DRUG USE FOR UNKNOWN INDICATION
     Route: 055
  3. PAROXETINE HCL [Concomitant]
  4. ALBUTEROL + IPRATROPIUM BROMIDE [Concomitant]
  5. COMBIVENT [Concomitant]

REACTIONS (4)
  - ASTHMA [None]
  - CARDIAC FAILURE [None]
  - DYSPNOEA [None]
  - ENDOCARDITIS BACTERIAL [None]
